FAERS Safety Report 24212845 (Version 1)
Quarter: 2024Q3

REPORT INFORMATION
  Report Type: Report from Study
  Country: US (occurrence: US)
  Receive Date: 20240815
  Receipt Date: 20240815
  Transmission Date: 20241016
  Serious: Yes (Other)
  Sender: ABBVIE
  Company Number: US-ABBVIE-5879579

PATIENT
  Sex: Male

DRUGS (1)
  1. HUMIRA [Suspect]
     Active Substance: ADALIMUMAB
     Indication: Ankylosing spondylitis
     Dosage: END DATE WAS 2024
     Route: 058
     Dates: start: 202402

REACTIONS (1)
  - Dental operation [Recovering/Resolving]

NARRATIVE: CASE EVENT DATE: 20240101
